FAERS Safety Report 16892163 (Version 2)
Quarter: 2020Q1

REPORT INFORMATION
  Report Type: Spontaneous
  Country: US (occurrence: US)
  Receive Date: 20191007
  Receipt Date: 20200124
  Transmission Date: 20200409
  Serious: No
  Sender: FDA-Public Use
  Company Number: US-TOLMAR, INC.-19US000413

PATIENT
  Sex: Female
  Weight: 58.97 kg

DRUGS (1)
  1. METRONIDAZOLE. [Suspect]
     Active Substance: METRONIDAZOLE
     Indication: BACTERIAL INFECTION
     Dosage: INSERT GEL VIA APPLICATOR ONCE A NIGHT
     Route: 061
     Dates: start: 2018

REACTIONS (1)
  - Drug ineffective [Unknown]
